FAERS Safety Report 14230418 (Version 3)
Quarter: 2019Q1

REPORT INFORMATION
  Report Type: Spontaneous
  Country: US (occurrence: US)
  Receive Date: 20171128
  Receipt Date: 20190103
  Transmission Date: 20190417
  Serious: Yes (Other)
  Sender: FDA-Public Use
  Company Number: US-PFIZER INC-2017506679

PATIENT
  Age: 39 Year
  Sex: Female
  Weight: 70 kg

DRUGS (8)
  1. VANCOMYCIN HCL [Suspect]
     Active Substance: VANCOMYCIN HYDROCHLORIDE
     Dosage: 750 MG, 2X/DAY (EVERY 12 HOURS)
     Route: 042
  2. PIPERACILLIN/TAZOBACTAM [Concomitant]
     Active Substance: PIPERACILLIN SODIUM\TAZOBACTAM SODIUM
     Indication: PNEUMONIA STAPHYLOCOCCAL
     Dosage: UNK
  3. VANCOMYCIN HCL [Suspect]
     Active Substance: VANCOMYCIN HYDROCHLORIDE
     Dosage: 1000 MG, 2X/DAY (EVERY 12 HOURS)
     Route: 042
  4. VANCOMYCIN HCL [Suspect]
     Active Substance: VANCOMYCIN HYDROCHLORIDE
     Dosage: 1250 MG, 2X/DAY (EVERY 12 HOURS)
     Route: 042
  5. VANCOMYCIN HCL [Suspect]
     Active Substance: VANCOMYCIN HYDROCHLORIDE
     Indication: PNEUMONIA STAPHYLOCOCCAL
     Dosage: 1500 MG, 2X/DAY (EVERY 12 HOURS BASED)
     Route: 042
  6. VANCOMYCIN HCL [Suspect]
     Active Substance: VANCOMYCIN HYDROCHLORIDE
     Dosage: 1000 MG, 2X/DAY (EVERY 12 HOURS)
     Route: 042
  7. VANCOMYCIN HCL [Suspect]
     Active Substance: VANCOMYCIN HYDROCHLORIDE
     Dosage: 750 MG, 2X/DAY (DECREASED TO 750 MG, EVERY 12 HOURS)
     Route: 042
  8. VANCOMYCIN HCL [Suspect]
     Active Substance: VANCOMYCIN HYDROCHLORIDE
     Dosage: 1000 MG, 2X/DAY (EVERY 12 HOURS)
     Route: 042

REACTIONS (2)
  - Hypothermia [Not Recovered/Not Resolved]
  - Drug level above therapeutic [Unknown]
